FAERS Safety Report 5072802-2 (Version None)
Quarter: 2006Q3

REPORT INFORMATION
  Report Type: 
  Country: None (occurrence: None)
  Receive Date: 20060801
  Receipt Date: 20060718
  Transmission Date: 20061208
  Serious: Yes (Hospitalization)
  Sender: FDA-Public Use
  Company Number: SPV1-2006-00232

PATIENT
  Age: 50 Year
  Sex: Male

DRUGS (8)
  1. CARBAMAZEPINE [Suspect]
     Dosage: SEE IMAGE
  2. LOPINAVIR       (LOPINAVIR) [Suspect]
     Dosage: 133 MG, 2X/DAY:BID,
  3. RITONAVIR     (RITONAVIR) [Suspect]
     Dosage: 33 MG, 3 CAPSULES BID,
  4. NELFINAVIR MESILATE              (NELFINAVIR MESILATE) [Suspect]
     Dosage: 1250 MG BID,
  5. TENOFOVIR            (TENOFOVIR) [Concomitant]
  6. LAMIVUDINE [Concomitant]
  7. CITALOPRAM HYDROBROMIDE [Concomitant]
  8. DAPSONE [Concomitant]

REACTIONS (19)
  - ANAEMIA [None]
  - ANTICONVULSANT DRUG LEVEL INCREASED [None]
  - BALANCE DISORDER [None]
  - BONE MARROW TOXICITY [None]
  - CONFUSIONAL STATE [None]
  - DISTURBANCE IN ATTENTION [None]
  - DRUG INTERACTION [None]
  - DRUG TOXICITY [None]
  - DYSPHAGIA [None]
  - FATIGUE [None]
  - GAIT DISTURBANCE [None]
  - ORAL CANDIDIASIS [None]
  - PARAESTHESIA [None]
  - PURPURA [None]
  - RASH ERYTHEMATOUS [None]
  - RASH GENERALISED [None]
  - RASH MACULO-PAPULAR [None]
  - RASH PRURITIC [None]
  - SOMNOLENCE [None]
